FAERS Safety Report 8244059-2 (Version None)
Quarter: 2012Q1

REPORT INFORMATION
  Report Type: 
  Country: None (occurrence: None)
  Receive Date: 20120329
  Receipt Date: 20120319
  Transmission Date: 20120608
  Serious: No
  Sender: FDA-Public Use
  Company Number: US-ELI_LILLY_AND_COMPANY-US201201008869

PATIENT
  Age: 21 Year
  Sex: Female
  Weight: 365 kg

DRUGS (10)
  1. FISH OIL [Concomitant]
     Dosage: UNK, UNKNOWN
  2. PROCARDIN [Concomitant]
     Indication: OESOPHAGEAL SPASM
     Dosage: UNK, UNKNOWN
  3. SPIROLAKTON [Concomitant]
     Dosage: UNK, UNKNOWN
  4. MINOCIN [Concomitant]
  5. METFORMIN HCL [Concomitant]
     Dosage: UNK, UNKNOWN
  6. CYMBALTA [Suspect]
     Indication: MAJOR DEPRESSION
     Dosage: 120 MG, QD
     Route: 048
  7. JANUMET [Concomitant]
  8. DEPLIN [Concomitant]
     Dosage: UNK, UNKNOWN
  9. XANAX                                   /USA/ [Concomitant]
     Dosage: UNK, PRN
  10. VITAMIN D [Concomitant]
     Dosage: UNK, UNKNOWN

REACTIONS (2)
  - DIABETES MELLITUS [None]
  - HEPATIC STEATOSIS [None]
